FAERS Safety Report 8595374-4 (Version None)
Quarter: 2012Q3

REPORT INFORMATION
  Report Type: 
  Country: None (occurrence: None)
  Receive Date: 20120807
  Receipt Date: 20120807
  Transmission Date: 20120928
  Serious: No
  Sender: FDA-Public Use
  Company Number: None

PATIENT
  Age: 69 Year
  Sex: Male
  Weight: 91.9 kg

DRUGS (7)
  1. DOCUSATE [Concomitant]
  2. ENOXAPARIN (PROPHYLAXIS WHILE ON LENALIDOMIDE) [Concomitant]
  3. CALCIUM [Concomitant]
  4. DOCETAXEL [Suspect]
     Indication: PROSTATE CANCER
     Dosage: 75 MG/M2 IV
     Route: 042
     Dates: start: 20120514
  5. M.V.I. [Concomitant]
  6. VITAMIN D [Concomitant]
  7. SENNA [Concomitant]

REACTIONS (3)
  - CARDIO-RESPIRATORY ARREST [None]
  - PALPITATIONS [None]
  - ERYTHEMA [None]
